FAERS Safety Report 12983085 (Version 1)
Quarter: 2016Q4

REPORT INFORMATION
  Report Type: Spontaneous
  Country: US (occurrence: US)
  Receive Date: 20161129
  Receipt Date: 20161129
  Transmission Date: 20170207
  Serious: No
  Sender: FDA-Public Use
  Company Number: US-MALLINCKRODT-T201602266

PATIENT
  Age: 69 Year
  Sex: Female
  Weight: 102 kg

DRUGS (1)
  1. FENTANYL TRANSDERMAL SYSTEM [Suspect]
     Active Substance: FENTANYL
     Indication: PROCEDURAL PAIN
     Dosage: 1 PATCH EVERY 72 HOURS
     Route: 062
     Dates: start: 2016

REACTIONS (4)
  - Drug ineffective [Not Recovered/Not Resolved]
  - Product adhesion issue [Unknown]
  - Incorrect drug administration duration [Unknown]
  - Skin discomfort [Unknown]

NARRATIVE: CASE EVENT DATE: 20160525
